FAERS Safety Report 6203321-5 (Version None)
Quarter: 2009Q2

REPORT INFORMATION
  Report Type: 
  Country: None (occurrence: None)
  Receive Date: 20090527
  Receipt Date: 20090518
  Transmission Date: 20091009
  Serious: Yes (Hospitalization)
  Sender: FDA-Public Use
  Company Number: PHHY2009MX18802

PATIENT
  Age: 70 Year
  Sex: Male

DRUGS (8)
  1. GALVUS [Suspect]
     Indication: DIABETES MELLITUS
     Dosage: 2 TABLETS (50 MG) PER DAY
     Route: 048
     Dates: start: 20090101
  2. DIOVAN HCT [Suspect]
     Indication: HYPERTENSION
     Dosage: 80/12.5 MG
     Dates: start: 20040101
  3. NEXIUM [Concomitant]
  4. VYTORIN [Concomitant]
  5. CONTROLIP (FENOFIBRATE) [Concomitant]
  6. CARESS [Concomitant]
  7. LIKA [Concomitant]
  8. METFORMIN HCL [Concomitant]
     Indication: DIABETES MELLITUS
     Dosage: UNK
     Dates: start: 20030101

REACTIONS (1)
  - HYPOGLYCAEMIA [None]
